FAERS Safety Report 18077196 (Version 1)
Quarter: 2020Q3

REPORT INFORMATION
  Report Type: Report from Study
  Country: US (occurrence: US)
  Receive Date: 20200727
  Receipt Date: 20200727
  Transmission Date: 20201103
  Serious: Yes (Other)
  Sender: FDA-Public Use
  Company Number: US-ACTELION-A-NJ2019-188285

PATIENT
  Sex: Female

DRUGS (1)
  1. OPSUMIT [Suspect]
     Active Substance: MACITENTAN
     Indication: PULMONARY ARTERIAL HYPERTENSION
     Dosage: 10 MG, QD
     Route: 048
     Dates: start: 20180406, end: 202002

REACTIONS (15)
  - Cardiac dysfunction [Unknown]
  - Panic attack [Unknown]
  - Malaise [Not Recovered/Not Resolved]
  - Influenza [Unknown]
  - Disturbance in attention [Unknown]
  - Adverse event [Unknown]
  - Anxiety [Unknown]
  - Nasopharyngitis [Unknown]
  - Dyspnoea [Unknown]
  - Systemic lupus erythematosus [Unknown]
  - Dizziness [Unknown]
  - Product dose omission issue [Unknown]
  - Lung disorder [Unknown]
  - Stress [Unknown]
  - Irritable bowel syndrome [Unknown]
